FAERS Safety Report 6608279-2 (Version None)
Quarter: 2010Q1

REPORT INFORMATION
  Report Type: 
  Country: None (occurrence: None)
  Receive Date: 20100301
  Receipt Date: 20100217
  Transmission Date: 20100710
  Serious: Yes (Hospitalization, Other)
  Sender: FDA-Public Use
  Company Number: DE-ROCHE-687060

PATIENT
  Sex: Male
  Weight: 90 kg

DRUGS (5)
  1. CAPECITABINE [Suspect]
     Dosage: 8 CYCLES
     Route: 048
     Dates: start: 20090604, end: 20091202
  2. OXALIPLATIN [Suspect]
     Dosage: 8 CYCLES
     Route: 042
     Dates: start: 20090604, end: 20091202
  3. PANTOZOL [Concomitant]
     Indication: PROPHYLAXIS
     Route: 048
  4. METFORMIN HYDROCHLORIDE [Concomitant]
     Indication: DIABETES MELLITUS
     Route: 048
  5. BELOC-ZOK [Concomitant]
     Indication: HYPERTENSION
     Route: 048

REACTIONS (2)
  - CHOLELITHIASIS [None]
  - PANCREATITIS [None]
